FAERS Safety Report 24782213 (Version 1)
Quarter: 2024Q4

REPORT INFORMATION
  Report Type: Other
  Country: US (occurrence: US)
  Receive Date: 20241227
  Receipt Date: 20241227
  Transmission Date: 20250115
  Serious: Yes (Life-Threatening, Hospitalization, Other)
  Sender: BIONPHARMA INC.
  Company Number: US-Bion-014611

PATIENT
  Age: 37 Year
  Sex: Female

DRUGS (1)
  1. METHIMAZOLE [Suspect]
     Active Substance: METHIMAZOLE
     Indication: Graves^ disease
     Dosage: 10MG

REACTIONS (3)
  - Agranulocytosis [Recovered/Resolved]
  - Oral infection [Unknown]
  - Abscess limb [Unknown]
